FAERS Safety Report 4989230-8 (Version None)
Quarter: 2006Q2

REPORT INFORMATION
  Report Type: 
  Country: None (occurrence: None)
  Receive Date: 20060425
  Receipt Date: 20060411
  Transmission Date: 20061013
  Serious: Yes (Other)
  Sender: FDA-Public Use
  Company Number: 2006049790

PATIENT
  Sex: Female
  Weight: 71.6683 kg

DRUGS (3)
  1. DETROL LA [Suspect]
     Indication: HYPERTONIC BLADDER
     Dosage: (1 IN 1 D)
  2. COZAAR [Concomitant]
  3. DILTIAZEM [Concomitant]

REACTIONS (5)
  - DRY MOUTH [None]
  - HEADACHE [None]
  - HYPERTONIC BLADDER [None]
  - URETHRAL OPERATION [None]
  - WEIGHT INCREASED [None]
